FAERS Safety Report 13338400 (Version 1)
Quarter: 2017Q1

REPORT INFORMATION
  Report Type: Spontaneous
  Country: FR (occurrence: FR)
  Receive Date: 20170315
  Receipt Date: 20170315
  Transmission Date: 20170428
  Serious: Yes (Other)
  Sender: FDA-Public Use
  Company Number: FR-SA-2017SA041609

PATIENT
  Age: 58 Year
  Sex: Female

DRUGS (1)
  1. APROVEL [Suspect]
     Active Substance: IRBESARTAN
     Dosage: START DATE MORE THAN ONE YEAR, DURATION 1.5 MONTHS
     Route: 048

REACTIONS (1)
  - Acute hepatic failure [Unknown]
